FAERS Safety Report 24386520 (Version 1)
Quarter: 2024Q4

REPORT INFORMATION
  Report Type: Report from Study
  Country: US (occurrence: US)
  Receive Date: 20241002
  Receipt Date: 20241002
  Transmission Date: 20250115
  Serious: Yes (Other)
  Sender: ABBVIE
  Company Number: US-ABBVIE-5938092

PATIENT
  Sex: Female

DRUGS (2)
  1. HUMIRA [Suspect]
     Active Substance: ADALIMUMAB
     Indication: Product used for unknown indication
     Dosage: CITRATE FREE
     Route: 058
  2. COSENTYX [Suspect]
     Active Substance: SECUKINUMAB
     Indication: Product used for unknown indication
     Route: 065

REACTIONS (8)
  - Suicidal ideation [Unknown]
  - Dysstasia [Unknown]
  - Pyrexia [Unknown]
  - Condition aggravated [Unknown]
  - Depressed mood [Unknown]
  - Sitting disability [Unknown]
  - General physical health deterioration [Unknown]
  - Groin pain [Not Recovered/Not Resolved]
